FAERS Safety Report 9893553 (Version 2)
Quarter: 2016Q2

REPORT INFORMATION
  Report Type: Spontaneous
  Country: DE (occurrence: DE)
  Receive Date: 20140213
  Receipt Date: 20160404
  Transmission Date: 20160815
  Serious: Yes (Death, Life-Threatening, Other)
  Sender: FDA-Public Use
  Company Number: DE-AMGEN-DEUSP2014009126

PATIENT
  Age: 71 Year
  Sex: Female
  Weight: 87.8 kg

DRUGS (10)
  1. NACL [Concomitant]
     Active Substance: SODIUM CHLORIDE
  2. LINOLA [Concomitant]
  3. ABRAXANE [Suspect]
     Active Substance: PACLITAXEL
     Indication: BREAST CANCER METASTATIC
     Dosage: 100 MG/M2, QWK
     Route: 042
     Dates: start: 20131121, end: 20131121
  4. AVASTIN [Suspect]
     Active Substance: BEVACIZUMAB
     Indication: BREAST CANCER METASTATIC
     Dosage: 15 MG, Q3WK
     Route: 015
     Dates: start: 20131121, end: 20131121
  5. EMEND [Concomitant]
     Active Substance: APREPITANT
     Indication: PREMEDICATION
  6. KEVATRIL [Concomitant]
     Active Substance: GRANISETRON HYDROCHLORIDE
     Indication: PROPHYLAXIS OF NAUSEA AND VOMITING
     Dosage: 1 MG, QWK
     Route: 065
     Dates: start: 20131121, end: 20131121
  7. DEXAMETHASONE. [Concomitant]
     Active Substance: DEXAMETHASONE
     Indication: PROPHYLAXIS OF NAUSEA AND VOMITING
     Dosage: UNK
     Route: 042
     Dates: start: 20131121, end: 20131121
  8. XGEVA [Suspect]
     Active Substance: DENOSUMAB
     Indication: METASTASES TO BONE
  9. NEULASTA [Concomitant]
     Active Substance: PEGFILGRASTIM
     Indication: PROPHYLAXIS
     Route: 065
  10. XGEVA [Suspect]
     Active Substance: DENOSUMAB
     Indication: BREAST CANCER METASTATIC
     Dosage: 120 MG, Q4WK
     Route: 058
     Dates: start: 20110922

REACTIONS (19)
  - General physical health deterioration [Not Recovered/Not Resolved]
  - Mucosal inflammation [Unknown]
  - Dermatitis [Unknown]
  - Sepsis [Fatal]
  - Chills [Unknown]
  - Pyrexia [Unknown]
  - Malignant neoplasm progression [Fatal]
  - Impaired healing [Unknown]
  - Leukopenia [Unknown]
  - Ascites [Unknown]
  - Dyspnoea exertional [Unknown]
  - Coma hepatic [Fatal]
  - Speech disorder [Unknown]
  - Skin necrosis [Fatal]
  - Pruritus [Unknown]
  - Depressed level of consciousness [Unknown]
  - Dysphonia [Unknown]
  - Skin discolouration [Unknown]
  - Oedema peripheral [Unknown]

NARRATIVE: CASE EVENT DATE: 20131123
